FAERS Safety Report 4831943-2 (Version None)
Quarter: 2005Q4

REPORT INFORMATION
  Report Type: 
  Country: None (occurrence: None)
  Receive Date: 20051116
  Receipt Date: 20051101
  Transmission Date: 20060501
  Serious: Yes (Other)
  Sender: FDA-Public Use
  Company Number: S05-NOR-03632-01

PATIENT
  Age: 33 Year
  Sex: Female

DRUGS (1)
  1. ESCITALOPRAM OXALATE [Suspect]
     Indication: DEPRESSION
     Dosage: 10 MG QD PO
     Route: 048
     Dates: start: 20050531, end: 20050905

REACTIONS (6)
  - APNOEIC ATTACK [None]
  - DIZZINESS POSTURAL [None]
  - FALL [None]
  - HYPERTENSION [None]
  - ORTHOSTATIC HYPOTENSION [None]
  - TREMOR [None]
